FAERS Safety Report 25725020 (Version 1)
Quarter: 2025Q3

REPORT INFORMATION
  Report Type: Spontaneous
  Country: JO (occurrence: JO)
  Receive Date: 20250826
  Receipt Date: 20250826
  Transmission Date: 20251020
  Serious: Yes (Other)
  Sender: ALKEM
  Company Number: JO-ALKEM LABORATORIES LIMITED-JO-ALKEM-2024-18644

PATIENT
  Age: 22 Year
  Sex: Male

DRUGS (1)
  1. PREGABALIN [Suspect]
     Active Substance: PREGABALIN
     Indication: Product used for unknown indication
     Route: 065

REACTIONS (5)
  - Drug abuse [Unknown]
  - Withdrawal syndrome [Unknown]
  - Dissociative disorder [Unknown]
  - Fatigue [Unknown]
  - Affective disorder [Unknown]
